FAERS Safety Report 6769322-3 (Version None)
Quarter: 2010Q2

REPORT INFORMATION
  Report Type: 
  Country: None (occurrence: None)
  Receive Date: 20100615
  Receipt Date: 20100611
  Transmission Date: 20101027
  Serious: Yes (Death, Hospitalization)
  Sender: FDA-Public Use
  Company Number: JP-JNJFOC-20100600088

PATIENT
  Age: 88 Year
  Sex: Male

DRUGS (11)
  1. TOPIRAMATE [Suspect]
     Indication: STATUS EPILEPTICUS
     Route: 048
  2. TOPIRAMATE [Suspect]
     Indication: EPILEPSY
     Route: 048
  3. DEPAKENE [Concomitant]
     Indication: CEREBRAL INFARCTION
     Dosage: DEPAKENE SYRUP 5%
     Route: 048
  4. DEPAKENE [Concomitant]
     Indication: STATUS EPILEPTICUS
     Dosage: DEPAKENE SYRUP 5%
     Route: 048
  5. MYSTAN [Concomitant]
     Indication: DRUG USE FOR UNKNOWN INDICATION
     Dosage: DEPAKENE SYRUP 5%
     Route: 048
  6. EXCEGRAN [Concomitant]
     Indication: CEREBRAL INFARCTION
     Dosage: DEPAKENE SYRUP 5%
     Route: 048
  7. EXCEGRAN [Concomitant]
     Indication: STATUS EPILEPTICUS
     Dosage: DEPAKENE SYRUP 5%
     Route: 048
  8. EFFORTIL [Concomitant]
     Indication: DRUG USE FOR UNKNOWN INDICATION
     Dosage: DEPAKENE SYRUP 5%
     Route: 048
  9. LASIX [Concomitant]
     Indication: DRUG USE FOR UNKNOWN INDICATION
     Route: 048
  10. LASIX [Concomitant]
     Dosage: DEPAKENE SYRUP 5%
     Route: 048
  11. ALOSENN [Concomitant]
     Indication: DRUG USE FOR UNKNOWN INDICATION
     Dosage: DEPAKENE SYRUP 5%
     Route: 048

REACTIONS (2)
  - ABDOMINAL DISTENSION [None]
  - DEATH [None]
